FAERS Safety Report 16973004 (Version 6)
Quarter: 2020Q3

REPORT INFORMATION
  Report Type: Other
  Country: US (occurrence: US)
  Receive Date: 20191030
  Receipt Date: 20200930
  Transmission Date: 20201102
  Serious: Yes (Death, Life-Threatening, Hospitalization, Other)
  Sender: FDA-Public Use
  Company Number: US-ROCHE-2290308

PATIENT
  Age: 4 Year
  Sex: Male
  Weight: 26.1 kg

DRUGS (33)
  1. LEVOTHYROXINE. [Concomitant]
     Active Substance: LEVOTHYROXINE
  2. PYRIDOXINE [Concomitant]
     Active Substance: PYRIDOXINE
  3. SCOPOLAMINE [Concomitant]
     Active Substance: SCOPOLAMINE
  4. MAGNESIUM CHLORIDE. [Concomitant]
     Active Substance: MAGNESIUM CHLORIDE
  5. BACLOFEN. [Concomitant]
     Active Substance: BACLOFEN
  6. ENTRECTINIB [Suspect]
     Active Substance: ENTRECTINIB
     Indication: NEOPLASM
     Dosage: FEEDING TUBE
     Route: 048
     Dates: start: 20190312
  7. DEXAMETHASONE. [Concomitant]
     Active Substance: DEXAMETHASONE
  8. OMEGA 3 [Concomitant]
     Active Substance: OMEGA-3 FATTY ACIDS
  9. ALBUTEROL. [Concomitant]
     Active Substance: ALBUTEROL
  10. MORPHINE [Concomitant]
     Active Substance: MORPHINE
  11. SIMETHICONE (DIMETHICONE) [Concomitant]
     Active Substance: DIMETHICONE
  12. PERAMPANEL [Concomitant]
     Active Substance: PERAMPANEL
     Dates: start: 20190420
  13. ACETAMINOPHEN. [Concomitant]
     Active Substance: ACETAMINOPHEN
  14. POTASSIUM CHLORIDE. [Concomitant]
     Active Substance: POTASSIUM CHLORIDE
  15. NALOXONE [Concomitant]
     Active Substance: NALOXONE
  16. NYSTATINE [Concomitant]
  17. ENTRECTINIB [Suspect]
     Active Substance: ENTRECTINIB
     Indication: ANAPLASTIC ASTROCYTOMA
  18. FAMOTIDINE. [Concomitant]
     Active Substance: FAMOTIDINE
  19. LEVETIRACETAM. [Concomitant]
     Active Substance: LEVETIRACETAM
  20. CHOLECALCIFEROL [Concomitant]
     Active Substance: CHOLECALCIFEROL
     Dates: start: 200403
  21. GABAPENTIN. [Concomitant]
     Active Substance: GABAPENTIN
  22. SODIUM CHLORIDE. [Concomitant]
     Active Substance: SODIUM CHLORIDE
  23. METHADONE [Concomitant]
     Active Substance: METHADONE HYDROCHLORIDE
     Dates: start: 20190813
  24. FENTANYL. [Concomitant]
     Active Substance: FENTANYL
  25. HYDROCORTISON [Concomitant]
     Active Substance: HYDROCORTISONE
  26. ONDANSETRON [Concomitant]
     Active Substance: ONDANSETRON
  27. ATOVAQUONE. [Concomitant]
     Active Substance: ATOVAQUONE
  28. POLYETHYLENE GLYCOL [Concomitant]
     Active Substance: POLYETHYLENE GLYCOLS
  29. DESMOPRESSIN [Concomitant]
     Active Substance: DESMOPRESSIN
  30. DIAZEPAM. [Concomitant]
     Active Substance: DIAZEPAM
  31. SENNOSIDES. [Concomitant]
     Active Substance: SENNOSIDES
  32. LORAZEPAM. [Concomitant]
     Active Substance: LORAZEPAM
  33. GABAPENTIN. [Concomitant]
     Active Substance: GABAPENTIN

REACTIONS (13)
  - Hypernatraemia [Recovered/Resolved]
  - Hypoxia [Unknown]
  - Adenovirus infection [Unknown]
  - Respiratory syncytial virus infection [Unknown]
  - Pneumonia aspiration [Recovered/Resolved]
  - Pancreatitis [Unknown]
  - Hyponatraemia [Recovered/Resolved]
  - Seizure [Recovered/Resolved]
  - Alanine aminotransferase increased [Unknown]
  - Anaemia [Recovered/Resolved]
  - Wound infection [Unknown]
  - Lipase increased [Recovered/Resolved]
  - Viral upper respiratory tract infection [Unknown]

NARRATIVE: CASE EVENT DATE: 20190319
